FAERS Safety Report 6014029-3 (Version None)
Quarter: 2008Q4

REPORT INFORMATION
  Report Type: 
  Country: None (occurrence: None)
  Receive Date: 20081219
  Receipt Date: 20080717
  Transmission Date: 20090506
  Serious: No
  Sender: FDA-Public Use
  Company Number: A0690090A

PATIENT
  Age: 72 Year
  Sex: Male

DRUGS (3)
  1. AVODART [Suspect]
     Dosage: .5MG PER DAY
     Route: 048
     Dates: start: 20070925
  2. UROXATRAL [Concomitant]
  3. LOVASTATIN [Concomitant]

REACTIONS (7)
  - BREAST ENLARGEMENT [None]
  - EJACULATION DISORDER [None]
  - ERECTILE DYSFUNCTION [None]
  - GENITAL BURNING SENSATION [None]
  - LIBIDO DECREASED [None]
  - ORGASM ABNORMAL [None]
  - SEMEN VOLUME ABNORMAL [None]
